FAERS Safety Report 19940635 (Version 11)
Quarter: 2025Q4

REPORT INFORMATION
  Report Type: Report from Study
  Country: CO (occurrence: CO)
  Receive Date: 20211011
  Receipt Date: 20251222
  Transmission Date: 20260117
  Serious: Yes (Hospitalization, Other)
  Sender: ROCHE
  Company Number: CO-ROCHE-2929287

PATIENT
  Age: 54 Year
  Sex: Female

DRUGS (9)
  1. ADO-TRASTUZUMAB EMTANSINE [Suspect]
     Active Substance: ADO-TRASTUZUMAB EMTANSINE
     Indication: Breast cancer
     Dosage: NUMBER OF CYCLES PER REGIMEN: 1, THERAPY COMPLETED
     Route: 042
     Dates: start: 20200925, end: 20201009
  2. DOXORUBICIN [Suspect]
     Active Substance: DOXORUBICIN
     Indication: Breast cancer
     Dosage: CUMULATIVE DOSE: 300 MG
     Route: 042
     Dates: start: 20200527, end: 20200811
  3. PACLITAXEL [Suspect]
     Active Substance: PACLITAXEL
     Indication: Breast cancer
     Dosage: CUMULATIVE DOSE: 1072 MG
     Route: 042
     Dates: start: 20200925, end: 20201201
  4. CYCLOPHOSPHAMIDE [Suspect]
     Active Substance: CYCLOPHOSPHAMIDE
     Indication: Breast cancer
     Dosage: CUMULATIVE DOSE: 3GMS
     Route: 042
     Dates: start: 20200527, end: 20200811
  5. DAPAGLI FOZIN [Concomitant]
     Indication: Cardiac failure
     Route: 048
     Dates: start: 20211126, end: 20240429
  6. LINAGLIPTIN [Concomitant]
     Active Substance: LINAGLIPTIN
     Indication: Type 2 diabetes mellitus
     Route: 048
     Dates: start: 202106, end: 20240429
  7. METFORMIN [Concomitant]
     Active Substance: METFORMIN HYDROCHLORIDE
     Indication: Type 2 diabetes mellitus
     Route: 048
     Dates: start: 2016, end: 202106
  8. SACUBITRIL\VALSARTAN [Concomitant]
     Active Substance: SACUBITRIL\VALSARTAN
     Indication: Cardiac failure
     Route: 048
     Dates: start: 202208
  9. SEMAGLUTIDE [Concomitant]
     Active Substance: SEMAGLUTIDE
     Route: 048
     Dates: start: 20240709

REACTIONS (6)
  - Cardiac disorder [Recovered/Resolved]
  - Arteriosclerosis [Not Recovered/Not Resolved]
  - Nephrolithiasis [Not Recovered/Not Resolved]
  - Diverticulum [Not Recovered/Not Resolved]
  - Hypertension [Not Recovered/Not Resolved]
  - Chest pain [Recovered/Resolved]

NARRATIVE: CASE EVENT DATE: 20201112
